FAERS Safety Report 18238463 (Version 1)
Quarter: 2020Q3

REPORT INFORMATION
  Report Type: Spontaneous
  Country: US (occurrence: US)
  Receive Date: 20200907
  Receipt Date: 20200907
  Transmission Date: 20201103
  Serious: Yes (Death, Other)
  Sender: FDA-Public Use
  Company Number: US-BRISTOL-MYERS SQUIBB COMPANY-BMS-2020-069837

PATIENT
  Sex: Male
  Weight: 81.6 kg

DRUGS (3)
  1. COUMADIN [Suspect]
     Active Substance: WARFARIN SODIUM
     Indication: CARDIAC FAILURE CONGESTIVE
     Dosage: UNK UNK, QD
     Route: 065
     Dates: start: 1988
  2. COUMADIN [Suspect]
     Active Substance: WARFARIN SODIUM
     Indication: VASCULAR GRAFT
  3. CARVEDILOL. [Concomitant]
     Active Substance: CARVEDILOL
     Indication: PRODUCT USED FOR UNKNOWN INDICATION
     Route: 065

REACTIONS (4)
  - Cardiac failure congestive [Fatal]
  - Intentional product use issue [Unknown]
  - Traumatic haemorrhage [Unknown]
  - Injury [Unknown]

NARRATIVE: CASE EVENT DATE: 2006
